FAERS Safety Report 15131307 (Version 1)
Quarter: 2018Q3

REPORT INFORMATION
  Report Type: Spontaneous
  Country: FR (occurrence: FR)
  Receive Date: 20180711
  Receipt Date: 20180711
  Transmission Date: 20181010
  Serious: Yes (Death)
  Sender: FDA-Public Use
  Company Number: FR-PFIZER INC-2018273427

PATIENT
  Age: 14 Year
  Sex: Female
  Weight: 55 kg

DRUGS (13)
  1. COSMEGEN [Suspect]
     Active Substance: DACTINOMYCIN
     Indication: RHABDOMYOSARCOMA
     Dosage: 1500 UG, SINGLE
     Route: 042
     Dates: start: 20170728, end: 20170728
  2. MESNA. [Concomitant]
     Active Substance: MESNA
  3. VINCRISTINE SULFATE. [Suspect]
     Active Substance: VINCRISTINE SULFATE
     Dosage: 2 MG, SINGLE
     Route: 042
     Dates: start: 20170728, end: 20170728
  4. GLUCIDION [Concomitant]
     Active Substance: GLUCOSE, LIQUID\POTASSIUM CHLORIDE\SODIUM CHLORIDE
  5. PHOCYTAN [Concomitant]
     Active Substance: .ALPHA.-GLUCOSE-1-PHOSPHATE
  6. SOLUPRED /00016201/ [Concomitant]
     Active Substance: PREDNISOLONE
  7. DOLIPRANE [Concomitant]
     Active Substance: ACETAMINOPHEN
  8. HOLOXAN [Suspect]
     Active Substance: IFOSFAMIDE
     Indication: RHABDOMYOSARCOMA
     Dosage: 5 G, SINGLE
     Route: 042
     Dates: start: 20170728, end: 20170728
  9. BACTRIM [Concomitant]
     Active Substance: SULFAMETHOXAZOLE\TRIMETHOPRIM
  10. ZOPHREN /00955302/ [Concomitant]
     Active Substance: ONDANSETRON
  11. PRINCI B [Concomitant]
  12. OROZAMUDOL [Concomitant]
     Active Substance: TRAMADOL
  13. EMEND [Concomitant]
     Active Substance: APREPITANT

REACTIONS (1)
  - Encephalopathy [Fatal]

NARRATIVE: CASE EVENT DATE: 20170729
